FAERS Safety Report 14738580 (Version 4)
Quarter: 2018Q2

REPORT INFORMATION
  Report Type: Spontaneous
  Country: US (occurrence: US)
  Receive Date: 20180409
  Receipt Date: 20180530
  Transmission Date: 20180711
  Serious: Yes (Other)
  Sender: FDA-Public Use
  Company Number: US-CELGENEUS-USA-20180401092

PATIENT
  Age: 56 Year
  Sex: Male

DRUGS (1)
  1. REVLIMID [Suspect]
     Active Substance: LENALIDOMIDE
     Indication: PLASMA CELL MYELOMA
     Dosage: 10 MILLIGRAM
     Route: 048
     Dates: start: 20160922

REACTIONS (5)
  - Dysstasia [Unknown]
  - Pain [Unknown]
  - Haemoptysis [Unknown]
  - Chest pain [Unknown]
  - Back pain [Unknown]

NARRATIVE: CASE EVENT DATE: 2018
